FAERS Safety Report 7943324 (Version 4)
Quarter: 2013Q4

REPORT INFORMATION
  Report Type: Report from Study
  Country: CA (occurrence: CA)
  Receive Date: 20110513
  Receipt Date: 20131010
  Transmission Date: 20140711
  Serious: Yes (Hospitalization, Other)
  Sender: FDA-Public Use
  Company Number: CA-ROCHE-624758

PATIENT
  Age: 31 Year
  Sex: Female
  Weight: 64.3 kg

DRUGS (22)
  1. BEVACIZUMAB [Suspect]
     Indication: BREAST CANCER
     Dosage: FORM: VIAL. TOTAL DOSE: 960 MG. DATE OF LAST DOSE PRIOR TO SAE: 18 MARCH 2009.
     Route: 042
     Dates: start: 20090318, end: 20090406
  2. TRASTUZUMAB [Suspect]
     Indication: BREAST CANCER
     Dosage: FORM: VIAL. TOTAL DOSE: 512 MG. DATE OF LAST DOSE PRIOR TO SAE: 18 MARCH 2009. LOADING DOSE.
     Route: 042
  3. TRASTUZUMAB [Suspect]
     Route: 042
  4. DOCETAXEL [Suspect]
     Indication: BREAST CANCER
     Dosage: FORM: VIAL. TOTAL DOSE: 126.8 MG. DATE OF LAST DOSE PRIOR TO SAE: 18 MARCH 2009.
     Route: 042
  5. DOCETAXEL [Suspect]
     Route: 042
  6. CARBOPLATIN [Suspect]
     Indication: BREAST CANCER
     Dosage: DOSE: 6 AUC. FORM:VIAL. TOTAL DOSE: 852 MG.DATE OF LAST DOSE PRIOR TO SAE:18 MAR 09.
     Route: 042
  7. CARBOPLATIN [Suspect]
     Route: 042
  8. TYLENOL [Suspect]
     Indication: PRODUCT USED FOR UNKNOWN INDICATION
     Route: 065
  9. MORPHINE [Suspect]
     Indication: PRODUCT USED FOR UNKNOWN INDICATION
     Dosage: FREQUENCY: Q 4 HRS PRN
     Route: 065
     Dates: start: 20090328, end: 20090401
  10. CIPRALEX [Suspect]
     Indication: PRODUCT USED FOR UNKNOWN INDICATION
     Route: 065
  11. CIPROFLOXACIN [Suspect]
     Indication: PROPHYLAXIS
     Route: 048
     Dates: start: 20090401, end: 20090403
  12. AMMONIUM CHLORIDE [Concomitant]
  13. CEFTAZIDIME [Concomitant]
     Route: 065
     Dates: start: 20090327, end: 20090328
  14. CODEINE [Concomitant]
     Route: 065
     Dates: start: 20090323, end: 20090328
  15. TRAZODONE [Concomitant]
     Route: 065
  16. ESCITALOPRAM [Concomitant]
     Route: 065
  17. DOCUSATE [Concomitant]
     Dosage: DOSE: 2 TO 6
     Route: 065
     Dates: start: 20090328, end: 20090402
  18. SENNA [Concomitant]
     Dosage: DOSE: 2TO 6
     Route: 065
     Dates: start: 20090328, end: 20090402
  19. LACTULOSE [Concomitant]
     Dosage: DOSE: 15 TO 30 ML
     Route: 065
     Dates: start: 20090328, end: 20090329
  20. MOUTHWASH NOS [Concomitant]
     Dosage: DRUG NAME: CCI MOUTH WASH. DOSAGE: 30 CC
     Route: 065
     Dates: start: 20090328, end: 20090331
  21. GRAVOL [Concomitant]
     Route: 065
     Dates: start: 20090329, end: 20090330
  22. CODEINE [Concomitant]

REACTIONS (3)
  - Bradycardia [Recovered/Resolved]
  - Pleural effusion [Recovering/Resolving]
  - Neutropenia [Recovered/Resolved]
